FAERS Safety Report 4641329-1 (Version None)
Quarter: 2005Q2

REPORT INFORMATION
  Report Type: 
  Country: None (occurrence: None)
  Receive Date: 20050419
  Receipt Date: 20050407
  Transmission Date: 20051028
  Serious: Yes (Life-Threatening)
  Sender: FDA-Public Use
  Company Number: 05P-144-0291275-00

PATIENT
  Age: 77 Year
  Sex: Male

DRUGS (10)
  1. CLARITHROMYCIN [Suspect]
     Indication: DYSPNOEA
     Dosage: 500 MG, 1 IN 12 HR
     Dates: start: 20031201
  2. CLARITHROMYCIN [Suspect]
     Indication: PRODUCTIVE COUGH
     Dosage: 500 MG, 1 IN 12 HR
     Dates: start: 20031201
  3. NIFEDIPINE [Suspect]
     Indication: HYPERTENSION
     Dosage: SEE IMAGE
     Route: 048
  4. CAPTOPRIL [Concomitant]
  5. DOXAZOSIN [Concomitant]
  6. VALSARTAN [Concomitant]
  7. UNPECIFIED MYCOLYTIC [Concomitant]
  8. FUROSEMIDE [Concomitant]
  9. ERYTHROMYCIN [Concomitant]
  10. CEFUROXIME [Concomitant]

REACTIONS (31)
  - ABDOMINAL PAIN [None]
  - ATRIAL PRESSURE INCREASED [None]
  - ATRIOVENTRICULAR BLOCK [None]
  - BLOOD PRESSURE SYSTOLIC INCREASED [None]
  - BRADYCARDIA [None]
  - CANDIDIASIS [None]
  - CONDITION AGGRAVATED [None]
  - CULTURE URINE POSITIVE [None]
  - CYANOSIS [None]
  - DEPRESSED LEVEL OF CONSCIOUSNESS [None]
  - DRUG INTERACTION [None]
  - ELECTROCARDIOGRAM QRS COMPLEX SHORTENED [None]
  - ELECTROLYTE IMBALANCE [None]
  - HAEMODIALYSIS [None]
  - HYPERGLYCAEMIA [None]
  - HYPERKALAEMIA [None]
  - HYPOCALCAEMIA [None]
  - HYPONATRAEMIA [None]
  - HYPOTENSION [None]
  - LEGIONELLA SEROLOGY POSITIVE [None]
  - METABOLIC ACIDOSIS [None]
  - MULTI-ORGAN FAILURE [None]
  - PERIPHERAL COLDNESS [None]
  - PULMONARY VASCULAR RESISTANCE ABNORMALITY [None]
  - PULSE ABSENT [None]
  - RENAL FAILURE ACUTE [None]
  - RENAL FAILURE CHRONIC [None]
  - RESPIRATORY FAILURE [None]
  - RHYTHM IDIOVENTRICULAR [None]
  - SEPTIC SHOCK [None]
  - VASCULAR RESISTANCE SYSTEMIC DECREASED [None]
